FAERS Safety Report 12635152 (Version 1)
Quarter: 2016Q3

REPORT INFORMATION
  Report Type: Report from Study
  Country: DE (occurrence: DE)
  Receive Date: 20160808
  Receipt Date: 20160808
  Transmission Date: 20161109
  Serious: Yes (Other)
  Sender: FDA-Public Use
  Company Number: DE-BIOGEN-2016BI00273110

PATIENT
  Age: 47 Year
  Sex: Male

DRUGS (1)
  1. TYSABRI [Suspect]
     Active Substance: NATALIZUMAB
     Indication: MULTIPLE SCLEROSIS
     Route: 042
     Dates: start: 2007

REACTIONS (3)
  - Multiple sclerosis relapse [Not Recovered/Not Resolved]
  - Haemorrhage [Unknown]
  - Neoplasm [Unknown]

NARRATIVE: CASE EVENT DATE: 201602
